FAERS Safety Report 5050620-9 (Version None)
Quarter: 2006Q3

REPORT INFORMATION
  Report Type: 
  Country: None (occurrence: None)
  Receive Date: 20060710
  Receipt Date: 20060705
  Transmission Date: 20061208
  Serious: Yes (Hospitalization)
  Sender: FDA-Public Use
  Company Number: 2006-05-0060

PATIENT
  Age: 64 Year
  Sex: Male
  Weight: 94 kg

DRUGS (7)
  1. TEMODAL [Suspect]
     Indication: GLIOBLASTOMA
     Dosage: 400-300 MG ORAL
     Route: 048
     Dates: start: 20060227, end: 20060322
  2. CHEMOTHERAPY REGIMENS [Concomitant]
  3. RADIATION THERAPY [Concomitant]
  4. ATORVASTATIN CALCIUM [Concomitant]
  5. IMOVANE [Concomitant]
  6. PANTOPRAZOLE SODIUM [Concomitant]
  7. PREVISCAN [Concomitant]

REACTIONS (3)
  - CHILLS [None]
  - HYPERSENSITIVITY [None]
  - PYREXIA [None]
